FAERS Safety Report 9709334 (Version 2)
Quarter: 2013Q4

REPORT INFORMATION
  Report Type: Report from Study
  Country: DE (occurrence: DE)
  Receive Date: 20131125
  Receipt Date: 20131205
  Transmission Date: 20140711
  Serious: Yes (Hospitalization)
  Sender: FDA-Public Use
  Company Number: DE-US-EMD SERONO, INC.-7251151

PATIENT
  Sex: Female
  Weight: 45 kg

DRUGS (4)
  1. REBIF [Suspect]
     Indication: MULTIPLE SCLEROSIS
     Route: 058
     Dates: start: 20131021, end: 201311
  2. TIZANIDINE [Concomitant]
     Indication: MULTIPLE SCLEROSIS
     Dosage: 0.5 DOSAGE IN MORNING AND ONE DOSAGE IN EVENING
     Route: 048
  3. RIVOTRIL [Concomitant]
     Indication: MULTIPLE SCLEROSIS
     Route: 048
  4. VENLAFAXINE [Concomitant]
     Indication: DEPRESSION

REACTIONS (2)
  - Diarrhoea [Not Recovered/Not Resolved]
  - Weight decreased [Unknown]
